FAERS Safety Report 6955808-5 (Version None)
Quarter: 2010Q3

REPORT INFORMATION
  Report Type: 
  Country: None (occurrence: None)
  Receive Date: 20100830
  Receipt Date: 20100825
  Transmission Date: 20110219
  Serious: Yes (Death)
  Sender: FDA-Public Use
  Company Number: GB-ROCHE-722088

PATIENT
  Sex: Male
  Weight: 75 kg

DRUGS (8)
  1. BEVACIZUMAB [Suspect]
     Dosage: LAST DOSE PRIOR TO SAE: 24 FEBRUARY 2010, TREATMENT STOPPED, CYCLE AND DOSE NUMBER: 3
     Route: 048
     Dates: start: 20100224
  2. CAPECITABINE [Suspect]
     Dosage: LAST DOSE PRIOR TO SAE: 24 APRIL 2010, TREATMENT STOPPED, CYCLE AND DOSE NUMBER: 3
     Route: 048
     Dates: start: 20100224
  3. CISPLATIN [Suspect]
     Dosage: LAST DOE PRIOR TO SAE: 15 APRIL 2010, TREATMENT STOPPED, CYCLE AND DOSE NUMBER: 3
     Route: 042
     Dates: start: 20100224
  4. EPIRUBICIN [Suspect]
     Dosage: DATE OF MOST RECENT ADMINISTRATION: 15 APRIL 2010. TREATMENT STOPPED. CYCLE AND DOSE NUMBER: 3
     Route: 042
     Dates: start: 20100224
  5. TAMSULOSIN HCL [Concomitant]
     Dosage: TREATMENT STOPPED.
     Route: 048
  6. RAMIPRIL [Concomitant]
     Dosage: TREATMENT STOPPED.
     Route: 048
  7. GLICLAZIDE [Concomitant]
     Dosage: TREATMENT STOPPED.
     Route: 048
  8. METFORMIN [Concomitant]
     Dosage: REPORTED AS: DAOMIN, TREATMENT STOPPED.
     Route: 042
     Dates: start: 20100316

REACTIONS (1)
  - SUDDEN DEATH [None]
